FAERS Safety Report 16049558 (Version 1)
Quarter: 2019Q1

REPORT INFORMATION
  Report Type: Spontaneous
  Country: US (occurrence: US)
  Receive Date: 20190307
  Receipt Date: 20190307
  Transmission Date: 20190418
  Serious: Yes (Other)
  Sender: FDA-Public Use
  Company Number: PHEH2019US010021

PATIENT
  Sex: Male

DRUGS (1)
  1. TASIGNA [Suspect]
     Active Substance: NILOTINIB
     Indication: CHRONIC MYELOID LEUKAEMIA
     Dosage: 150 MG, BID
     Route: 048

REACTIONS (15)
  - Coronary artery disease [Unknown]
  - Chronic obstructive pulmonary disease [Unknown]
  - Deafness [Unknown]
  - Left ventricular hypertrophy [Unknown]
  - Type 2 diabetes mellitus [Unknown]
  - Aortic valve sclerosis [Unknown]
  - Peripheral vascular disorder [Unknown]
  - Vomiting [Unknown]
  - Peripheral artery stenosis [Unknown]
  - Intermittent claudication [Unknown]
  - Hypertension [Unknown]
  - Mitral valve incompetence [Unknown]
  - Erectile dysfunction [Unknown]
  - Nausea [Unknown]
  - Dyspnoea [Unknown]
